FAERS Safety Report 11009254 (Version 1)
Quarter: 2015Q2

REPORT INFORMATION
  Report Type: Spontaneous
  Country: US (occurrence: US)
  Receive Date: 20150410
  Receipt Date: 20150410
  Transmission Date: 20150821
  Serious: No
  Sender: FDA-Public Use
  Company Number: US-PFIZER INC-2015120748

PATIENT
  Age: 56 Year
  Sex: Female
  Weight: 68 kg

DRUGS (1)
  1. CHANTIX [Suspect]
     Active Substance: VARENICLINE TARTRATE
     Indication: SMOKING CESSATION THERAPY
     Dosage: UNK
     Dates: start: 201502, end: 201503

REACTIONS (11)
  - Disorientation [Unknown]
  - Insomnia [Unknown]
  - Apathy [Unknown]
  - Irritability [Unknown]
  - Emotional disorder [Unknown]
  - Thirst [Unknown]
  - Increased appetite [Unknown]
  - Malaise [Unknown]
  - Feeling abnormal [Unknown]
  - Tobacco user [Recovered/Resolved]
  - Drug ineffective [Unknown]

NARRATIVE: CASE EVENT DATE: 201502
